FAERS Safety Report 25989616 (Version 1)
Quarter: 2025Q4

REPORT INFORMATION
  Report Type: Spontaneous
  Country: US (occurrence: None)
  Receive Date: 20251031
  Receipt Date: 20251031
  Transmission Date: 20260117
  Serious: Yes (Hospitalization)
  Sender: FDA-CTU
  Company Number: None

PATIENT
  Age: 69 Year
  Sex: Male

DRUGS (15)
  1. EVEROLIMUS [Suspect]
     Active Substance: EVEROLIMUS
     Indication: Heart transplant
     Dosage: FREQUENCY : TWICE A DAY;?
     Route: 048
     Dates: end: 20251031
  2. ENTECAVIR [Suspect]
     Active Substance: ENTECAVIR
     Indication: Hepatitis
     Dosage: OTHER FREQUENCY : WEEKLY;?
     Route: 048
     Dates: end: 20251031
  3. ACYCLOVIR [Concomitant]
     Active Substance: ACYCLOVIR
     Dates: end: 20251031
  4. Envarsus XR 0.75 mg [Concomitant]
     Dates: end: 20251031
  5. Envarsus XR 1 mg [Concomitant]
     Dates: end: 20251031
  6. FINASTERIDE [Concomitant]
     Active Substance: FINASTERIDE
     Dates: end: 20251031
  7. Mag-oxide 400 mg [Concomitant]
     Dates: end: 20251031
  8. OMEPRAZOLE [Concomitant]
     Active Substance: OMEPRAZOLE
     Dates: end: 20251031
  9. PRAVASTATIN [Concomitant]
     Active Substance: PRAVASTATIN
     Dates: end: 20251031
  10. TAMSULOSIN [Concomitant]
     Active Substance: TAMSULOSIN
     Dates: end: 20251031
  11. ASCORBIC ACID\BIOTIN\CALCIUM PANTOTHENATE\CYANOCOBALAMIN\FOLIC ACID\NI [Concomitant]
     Active Substance: ASCORBIC ACID\BIOTIN\CALCIUM PANTOTHENATE\CYANOCOBALAMIN\FOLIC ACID\NIACINAMIDE\PYRIDOXINE HYDROCHLO
     Dates: end: 20251031
  12. URSODIOL [Concomitant]
     Active Substance: URSODIOL
     Dates: end: 20251031
  13. TIMOLOL MALEATE [Concomitant]
     Active Substance: TIMOLOL MALEATE
     Dates: end: 20251031
  14. BRIMONIDINE [Concomitant]
     Active Substance: BRIMONIDINE TARTRATE
     Dates: end: 20251031
  15. Valganciclovir 450 mg [Concomitant]
     Dates: end: 20251031

REACTIONS (1)
  - Nonspecific reaction [None]

NARRATIVE: CASE EVENT DATE: 20250930
